FAERS Safety Report 25347460 (Version 2)
Quarter: 2025Q2

REPORT INFORMATION
  Report Type: Spontaneous
  Country: AU (occurrence: AU)
  Receive Date: 20250522
  Receipt Date: 20250529
  Transmission Date: 20250717
  Serious: Yes (Other)
  Sender: NOVARTIS
  Company Number: AU-002147023-NVSC2025AU080699

PATIENT

DRUGS (2)
  1. KISQALI [Suspect]
     Active Substance: RIBOCICLIB SUCCINATE
     Indication: Breast cancer metastatic
     Route: 065
  2. KISQALI [Suspect]
     Active Substance: RIBOCICLIB SUCCINATE
     Route: 065

REACTIONS (6)
  - Electrocardiogram QT prolonged [Unknown]
  - Hepatotoxicity [Not Recovered/Not Resolved]
  - Liver function test abnormal [Unknown]
  - Malaise [Unknown]
  - Influenza [Unknown]
  - Hypertransaminasaemia [Recovering/Resolving]
